FAERS Safety Report 7475888-0 (Version None)
Quarter: 2011Q2

REPORT INFORMATION
  Report Type: 
  Country: None (occurrence: None)
  Receive Date: 20110512
  Receipt Date: 20110506
  Transmission Date: 20111010
  Serious: Yes (Hospitalization)
  Sender: FDA-Public Use
  Company Number: US-B.I. PHARMACEUTICALS,INC./RIDGEFIELD-2011-BP-12694BP

PATIENT
  Age: 45 Year
  Sex: Male

DRUGS (4)
  1. COZAAR [Concomitant]
     Indication: HYPERTENSION
     Dosage: 100 MG
     Route: 048
  2. PRADAXA [Suspect]
     Indication: ATRIAL FIBRILLATION
     Dosage: 300 MG
     Route: 048
     Dates: start: 20110422, end: 20110423
  3. CARDIA XT [Concomitant]
     Indication: HYPERTENSION
     Dosage: 240 MG
     Route: 048
  4. TAMBOCOR [Concomitant]
     Indication: ATRIAL FIBRILLATION
     Dosage: 200 MG
     Route: 048

REACTIONS (4)
  - PULMONARY HAEMORRHAGE [None]
  - PYREXIA [None]
  - NAUSEA [None]
  - HAEMOPTYSIS [None]
